FAERS Safety Report 11174888 (Version 1)
Quarter: 2015Q2

REPORT INFORMATION
  Report Type: Spontaneous
  Country: US (occurrence: None)
  Receive Date: 20150608
  Receipt Date: 20150608
  Transmission Date: 20150821
  Serious: Yes (Other)
  Sender: FDA-Public Use
  Company Number: None

PATIENT
  Age: 45 Year
  Sex: Female

DRUGS (1)
  1. AMPHETAMINE SALTS [Suspect]
     Active Substance: AMPHETAMINE ASPARTATE\AMPHETAMINE SULFATE\DEXTROAMPHETAMINE SACCHARATE\DEXTROAMPHETAMINE SULFATE
     Indication: ATTENTION DEFICIT/HYPERACTIVITY DISORDER
     Route: 048
     Dates: start: 20150604, end: 20150605

REACTIONS (9)
  - Paraesthesia [None]
  - Headache [None]
  - Musculoskeletal stiffness [None]
  - Product substitution issue [None]
  - Hyperhidrosis [None]
  - Heart rate increased [None]
  - Palpitations [None]
  - Visual impairment [None]
  - Product quality issue [None]

NARRATIVE: CASE EVENT DATE: 20150605
